FAERS Safety Report 11289738 (Version 1)
Quarter: 2015Q3

REPORT INFORMATION
  Report Type: Report from Study
  Country: US (occurrence: SK)
  Receive Date: 20150721
  Receipt Date: 20150721
  Transmission Date: 20151125
  Serious: Yes (Death)
  Sender: FDA-Public Use
  Company Number: SK-FRI-1000078367

PATIENT
  Age: 78 Year
  Sex: Male
  Weight: 46 kg

DRUGS (4)
  1. LABA(LONG-ACTING BETA2 AGONIST)/ICS (INHALED CORTICOSTEROID) [Concomitant]
  2. THEOPHYLLINE OR DERIVATES [Concomitant]
  3. ROFLUMILAST [Suspect]
     Active Substance: ROFLUMILAST
     Indication: CHRONIC OBSTRUCTIVE PULMONARY DISEASE
     Dosage: 500 MCG
     Route: 048
     Dates: start: 20130429
  4. LONG-ACTING ANTICHOLINERGIC [Concomitant]

REACTIONS (1)
  - Death [Fatal]

NARRATIVE: CASE EVENT DATE: 20130920
